FAERS Safety Report 4595081-9 (Version None)
Quarter: 2005Q1

REPORT INFORMATION
  Report Type: 
  Country: None (occurrence: None)
  Receive Date: 20050223
  Receipt Date: 20050208
  Transmission Date: 20050727
  Serious: Yes (Death, Hospitalization)
  Sender: FDA-Public Use
  Company Number: 2005VX000154

PATIENT
  Age: 70 Year
  Sex: Male

DRUGS (1)
  1. PROSTIGMIN INJECTION (NEOSTIGMINE METILSULFATE) [Suspect]
     Indication: CONSTIPATION
     Dosage: 0.6 MG; EVERY HOUR; INTRAVENOUS
     Route: 042

REACTIONS (5)
  - ABDOMINAL INFECTION [None]
  - ABDOMINAL PAIN [None]
  - DIVERTICULAR PERFORATION [None]
  - MULTI-ORGAN FAILURE [None]
  - SEPSIS [None]
